FAERS Safety Report 20142347 (Version 1)
Quarter: 2021Q4

REPORT INFORMATION
  Report Type: Spontaneous
  Country: DE (occurrence: DE)
  Receive Date: 20211202
  Receipt Date: 20211202
  Transmission Date: 20220303
  Serious: Yes (Life-Threatening, Congenital Anomaly, Other)
  Sender: FDA-Public Use
  Company Number: DE-NOVARTISPH-NVSC2021DE272906

PATIENT
  Age: 1 Day
  Sex: Female
  Weight: 3.76 kg

DRUGS (2)
  1. VOLTAREN [Suspect]
     Active Substance: DICLOFENAC SODIUM
     Indication: Foetal exposure during pregnancy
     Dosage: MATERNAL DOSE: 250 [MG/INSGESAMT (5X50) ]/ 5 TABLETS (39.5. - 39.6. GESTATIONAL WEEK)
     Route: 064
  2. MECLIZINE HYDROCHLORIDE [Suspect]
     Active Substance: MECLIZINE HYDROCHLORIDE
     Indication: Foetal exposure during pregnancy
     Dosage: MATERNAL DOSE: 50 [MG/D (BIS 25) (5.2. - 19. GESTATIONAL WEEK)
     Route: 064

REACTIONS (9)
  - Ductus arteriosus premature closure [Unknown]
  - Pyelocaliectasis [Unknown]
  - Kidney duplex [Unknown]
  - Newborn persistent pulmonary hypertension [Recovered/Resolved]
  - Infantile apnoea [Recovered/Resolved]
  - Neonatal seizure [Recovered/Resolved]
  - Hypoxic-ischaemic encephalopathy [Unknown]
  - Atrial septal defect [Unknown]
  - Foetal exposure during pregnancy [Unknown]

NARRATIVE: CASE EVENT DATE: 20210804
